FAERS Safety Report 13237238 (Version 2)
Quarter: 2017Q1

REPORT INFORMATION
  Report Type: Report from Study
  Country: US (occurrence: US)
  Receive Date: 20170215
  Receipt Date: 20170223
  Transmission Date: 20170428
  Serious: Yes (Death)
  Sender: FDA-Public Use
  Company Number: US-ACTELION-A-NJ2016-134392

PATIENT
  Age: 78 Year
  Sex: Female
  Weight: 50.34 kg

DRUGS (1)
  1. OPSUMIT [Suspect]
     Active Substance: MACITENTAN
     Indication: PULMONARY ARTERIAL HYPERTENSION
     Dosage: 10 MG, QD
     Route: 048
     Dates: start: 201603

REACTIONS (4)
  - Death [Fatal]
  - Chest pain [Unknown]
  - Therapy non-responder [Unknown]
  - Rash pruritic [Unknown]
